FAERS Safety Report 8440646-7 (Version None)
Quarter: 2012Q2

REPORT INFORMATION
  Report Type: 
  Country: None (occurrence: None)
  Receive Date: 20120615
  Receipt Date: 20120606
  Transmission Date: 20120825
  Serious: Yes (Hospitalization)
  Sender: FDA-Public Use
  Company Number: US-MERCK-1206USA01221

PATIENT
  Age: 81 Year
  Sex: Male

DRUGS (9)
  1. WARFARIN [Concomitant]
     Route: 065
  2. CELECOXIB [Concomitant]
     Route: 065
  3. FUROSEMIDE [Concomitant]
     Indication: RENAL FAILURE
     Route: 065
  4. PRINIVIL [Suspect]
     Route: 048
  5. AZTREONAM [Concomitant]
     Indication: OSTEOMYELITIS
     Route: 065
  6. ALLOPURINOL [Concomitant]
     Route: 065
  7. SPIRONOLACTONE [Concomitant]
     Indication: RENAL FAILURE
     Route: 065
  8. VANCOMYCIN [Concomitant]
     Indication: OSTEOMYELITIS
     Route: 065
  9. INSULIN [Concomitant]
     Route: 065

REACTIONS (1)
  - HYPOTENSIVE TRANSFUSION REACTION [None]
